FAERS Safety Report 13668122 (Version 1)
Quarter: 2017Q2

REPORT INFORMATION
  Report Type: Spontaneous
  Country: US (occurrence: US)
  Receive Date: 20170619
  Receipt Date: 20170619
  Transmission Date: 20170830
  Serious: Yes (Life-Threatening, Disabling, Other)
  Sender: FDA-Public Use
  Company Number: None

PATIENT
  Age: 30 Year
  Sex: Female
  Weight: 51.3 kg

DRUGS (8)
  1. CLONAZEPAM. [Suspect]
     Active Substance: CLONAZEPAM
     Indication: SLEEP TERROR
     Dosage: ?          QUANTITY:1 TABLET(S);?
     Route: 048
     Dates: start: 20090908, end: 20150902
  2. VITAMIN C [Concomitant]
     Active Substance: ASCORBIC ACID
  3. ZOLOFT [Concomitant]
     Active Substance: SERTRALINE HYDROCHLORIDE
  4. VITAMIN D3 [Concomitant]
     Active Substance: CHOLECALCIFEROL
  5. FISH OIL [Concomitant]
     Active Substance: FISH OIL
  6. GABAPENTIN. [Concomitant]
     Active Substance: GABAPENTIN
  7. B6 [Concomitant]
     Active Substance: PYRIDOXINE HYDROCHLORIDE
  8. VITAMIN B12 [Concomitant]
     Active Substance: CYANOCOBALAMIN

REACTIONS (11)
  - Neuralgia [None]
  - Delusion [None]
  - Suicidal ideation [None]
  - Migraine [None]
  - Bone pain [None]
  - Insomnia [None]
  - Palpitations [None]
  - Withdrawal syndrome [None]
  - Panic attack [None]
  - Tremor [None]
  - Akathisia [None]

NARRATIVE: CASE EVENT DATE: 20150902
